FAERS Safety Report 4933506-7 (Version None)
Quarter: 2006Q1

REPORT INFORMATION
  Report Type: 
  Country: None (occurrence: None)
  Receive Date: 20060306
  Receipt Date: 20051130
  Transmission Date: 20060701
  Serious: Yes (Disabling)
  Sender: FDA-Public Use
  Company Number: US-SANOFI-SYNTHELABO-A03200503975

PATIENT
  Age: 57 Year
  Sex: Female
  Weight: 61.7 kg

DRUGS (4)
  1. AMBIEN [Suspect]
     Indication: INSOMNIA
     Route: 048
     Dates: start: 20051128, end: 20051130
  2. FOSAMAX [Concomitant]
     Route: 048
  3. TAMOXIFEN CITRATE [Concomitant]
     Route: 048
  4. DIOVAN [Concomitant]
     Route: 048

REACTIONS (6)
  - ACTIVITIES OF DAILY LIVING IMPAIRED [None]
  - DIZZINESS [None]
  - FATIGUE [None]
  - FEELING ABNORMAL [None]
  - ILL-DEFINED DISORDER [None]
  - MIGRAINE [None]
